FAERS Safety Report 10714652 (Version 1)
Quarter: 2015Q1

REPORT INFORMATION
  Report Type: Spontaneous
  Country: US (occurrence: US)
  Receive Date: 20150115
  Receipt Date: 20150115
  Transmission Date: 20150721
  Serious: Yes (Hospitalization, Other)
  Sender: FDA-Public Use
  Company Number: US-JNJFOC-20150109402

PATIENT
  Age: 86 Year
  Sex: Female
  Weight: 51 kg

DRUGS (10)
  1. LASIX [Concomitant]
     Active Substance: FUROSEMIDE
  2. SINGULAIR [Concomitant]
     Active Substance: MONTELUKAST SODIUM
  3. POTASSIUM [Concomitant]
     Active Substance: POTASSIUM
  4. METOPROLOL [Concomitant]
     Active Substance: METOPROLOL
     Dosage: IF ONLY ABOVE 110
  5. CENTRUM SILVER [Concomitant]
     Active Substance: VITAMINS
  6. PANTOPRAZOLE [Concomitant]
     Active Substance: PANTOPRAZOLE SODIUM
  7. RAMIPRIL. [Concomitant]
     Active Substance: RAMIPRIL
     Dosage: IF ONLY ABOVE 110
  8. IMBRUVICA [Suspect]
     Active Substance: IBRUTINIB
     Indication: CHRONIC LYMPHOCYTIC LEUKAEMIA
     Route: 065
     Dates: start: 20140331, end: 2014
  9. PRAVASTATIN [Concomitant]
     Active Substance: PRAVASTATIN\PRAVASTATIN SODIUM
  10. IMBRUVICA [Suspect]
     Active Substance: IBRUTINIB
     Indication: CHRONIC LYMPHOCYTIC LEUKAEMIA
     Dosage: ALTERNATING 1 CAP ON ONE DAY THEN 2 CAPS THE NEXT DAY
     Route: 065
     Dates: start: 2014

REACTIONS (4)
  - Blood pressure increased [Unknown]
  - Rectal haemorrhage [Recovered/Resolved]
  - Epistaxis [Not Recovered/Not Resolved]
  - Haemoglobin decreased [Recovering/Resolving]

NARRATIVE: CASE EVENT DATE: 2014
